FAERS Safety Report 12463754 (Version 1)
Quarter: 2016Q2

REPORT INFORMATION
  Report Type: Spontaneous
  Country: US (occurrence: None)
  Receive Date: 20160613
  Receipt Date: 20160613
  Transmission Date: 20160815
  Serious: Yes (Hospitalization)
  Sender: FDA-Public Use
  Company Number: None

PATIENT
  Age: 10 Year
  Sex: Female
  Weight: 37.2 kg

DRUGS (2)
  1. FLINTSTONE VITAMINS [Concomitant]
  2. TRAMADOL + ACETAMINOPHEN [Suspect]
     Active Substance: ACETAMINOPHEN\TRAMADOL
     Indication: PROCEDURAL PAIN
     Dates: start: 20160608, end: 20160608

REACTIONS (8)
  - Disorientation [None]
  - Syncope [None]
  - Volume blood decreased [None]
  - Dizziness [None]
  - Nausea [None]
  - Contusion [None]
  - Concussion [None]
  - Confusional state [None]

NARRATIVE: CASE EVENT DATE: 20160609
